FAERS Safety Report 18332565 (Version 2)
Quarter: 2020Q4

REPORT INFORMATION
  Report Type: Spontaneous
  Country: FR (occurrence: FR)
  Receive Date: 20200930
  Receipt Date: 20201106
  Transmission Date: 20210113
  Serious: Yes (Other)
  Sender: FDA-Public Use
  Company Number: FR-009507513-2009FRA011556

PATIENT
  Sex: Female

DRUGS (3)
  1. MONOPROST [Concomitant]
     Active Substance: LATANOPROST
     Dosage: UNK
     Route: 047
  2. DORZOLAMIDE HYDROCHLORIDE. [Suspect]
     Active Substance: DORZOLAMIDE HYDROCHLORIDE
     Dosage: DOSE INCREASED TO 2 DROPS T WICE DAILY (PATIENT^S OWN DECISION) (2 GTT, 2 IN 1 D)
     Route: 047
     Dates: start: 202009
  3. DORZOLAMIDE HYDROCHLORIDE. [Suspect]
     Active Substance: DORZOLAMIDE HYDROCHLORIDE
     Indication: GLAUCOMA
     Dosage: 1 DROP TWICE DAILY IN RIGHT EYE (1 GTT, 2 IN 1 D)
     Route: 047
     Dates: start: 2010, end: 202009

REACTIONS (10)
  - Incorrect dosage administered [Unknown]
  - Drug ineffective [Unknown]
  - Off label use [Unknown]
  - Accidental underdose [Unknown]
  - Prescribed underdose [Unknown]
  - Glaucoma [Unknown]
  - Condition aggravated [Unknown]
  - Liquid product physical issue [Unknown]
  - Ocular hypertension [Unknown]
  - Circumstance or information capable of leading to medication error [Unknown]

NARRATIVE: CASE EVENT DATE: 202001
